FAERS Safety Report 23716073 (Version 1)
Quarter: 2024Q2

REPORT INFORMATION
  Report Type: Other
  Country: US (occurrence: None)
  Receive Date: 20240408
  Receipt Date: 20240408
  Transmission Date: 20240716
  Serious: No
  Sender: FDA-Public Use
  Company Number: US-ROCHE-3483519

PATIENT
  Age: 44 Year
  Sex: Female
  Weight: 55.933 kg

DRUGS (15)
  1. OCREVUS [Suspect]
     Active Substance: OCRELIZUMAB
     Indication: Multiple sclerosis
     Dosage: THEN 600 MG EVERY 6 MONTH
     Route: 042
  2. ACETAMINOPHEN [Concomitant]
     Active Substance: ACETAMINOPHEN
  3. FAMOTIDINE [Concomitant]
     Active Substance: FAMOTIDINE
  4. DIPHENHYDRAMINE [Concomitant]
     Active Substance: DIPHENHYDRAMINE
  5. ONDANSETRON [Concomitant]
     Active Substance: ONDANSETRON
  6. METHYLPREDNISOLONE [Concomitant]
     Active Substance: METHYLPREDNISOLONE
  7. BUTALBITAL [Concomitant]
     Active Substance: BUTALBITAL
  8. CITALOPRAM [Concomitant]
     Active Substance: CITALOPRAM\CITALOPRAM HYDROBROMIDE
  9. GABAPENTIN [Concomitant]
     Active Substance: GABAPENTIN
  10. IMITREX [Concomitant]
     Active Substance: SUMATRIPTAN SUCCINATE
  11. METHADONE [Concomitant]
     Active Substance: METHADONE HYDROCHLORIDE
  12. PANTOPRAZOLE [Concomitant]
     Active Substance: PANTOPRAZOLE
  13. COPAXONE [Concomitant]
     Active Substance: GLATIRAMER ACETATE
  14. SOLU-MEDROL [Concomitant]
     Active Substance: METHYLPREDNISOLONE SODIUM SUCCINATE
  15. KETOROLAC [Concomitant]
     Active Substance: KETOROLAC TROMETHAMINE

REACTIONS (6)
  - Blood urea increased [Unknown]
  - Blood creatinine decreased [Unknown]
  - Mean cell haemoglobin concentration decreased [Unknown]
  - Depression [Unknown]
  - Migraine [Unknown]
  - Hepatitis C [Unknown]
